FAERS Safety Report 5627536-X (Version None)
Quarter: 2008Q1

REPORT INFORMATION
  Report Type: 
  Country: None (occurrence: None)
  Receive Date: 20080215
  Receipt Date: 20071127
  Transmission Date: 20080703
  Serious: No
  Sender: FDA-Public Use
  Company Number: A0696052A

PATIENT
  Age: 70 Year
  Sex: Female

DRUGS (3)
  1. COREG CR [Suspect]
     Dosage: 80MG PER DAY
     Route: 048
     Dates: start: 20070910
  2. ENALAPRIL MALEATE AND HYDROCHLOROTHIAZIDE [Concomitant]
  3. GLUCOSAMINE [Concomitant]

REACTIONS (1)
  - MYALGIA [None]
